FAERS Safety Report 7986345-7 (Version None)
Quarter: 2011Q4

REPORT INFORMATION
  Report Type: 
  Country: None (occurrence: None)
  Receive Date: 20111216
  Receipt Date: 20110208
  Transmission Date: 20120403
  Serious: No
  Sender: FDA-Public Use
  Company Number: US-GLAXOSMITHKLINE-A0748379A

PATIENT
  Age: 80 Year
  Sex: Male

DRUGS (2)
  1. ENALAPRIL MALEATE [Concomitant]
  2. COREG CR [Suspect]
     Indication: CARDIAC DISORDER
     Dosage: 40MG PER DAY
     Route: 048
     Dates: start: 20060101

REACTIONS (3)
  - BLOOD PRESSURE INCREASED [None]
  - DIZZINESS [None]
  - FALL [None]
